FAERS Safety Report 8139151-7 (Version None)
Quarter: 2012Q1

REPORT INFORMATION
  Report Type: 
  Country: None (occurrence: None)
  Receive Date: 20120215
  Receipt Date: 20120208
  Transmission Date: 20120608
  Serious: Yes (Hospitalization)
  Sender: FDA-Public Use
  Company Number: US-BAYER-2011-063014

PATIENT
  Age: 31 Year
  Sex: Female
  Weight: 118 kg

DRUGS (7)
  1. CORGARD [Concomitant]
     Dosage: 80 MG, QD
     Route: 048
  2. NADOLOL [Concomitant]
     Indication: MIGRAINE
     Dosage: UNK
     Dates: start: 20000101, end: 20080901
  3. YAZ [Suspect]
     Indication: ORAL CONTRACEPTION
     Dosage: UNK
     Dates: start: 20070803, end: 20071026
  4. BENTYL [Concomitant]
     Dosage: 20 MG, QID
     Route: 048
     Dates: start: 20071026
  5. TRAMADOL HCL [Concomitant]
     Dosage: 50 MG, Q4HR
     Route: 048
  6. CORGARD [Concomitant]
     Dosage: 40 MG, QD
     Route: 048
  7. IMITREX [Concomitant]
     Indication: MIGRAINE
     Dosage: 100 MG, PRN
     Route: 048
     Dates: start: 19990101

REACTIONS (3)
  - MESENTERIC VEIN THROMBOSIS [None]
  - PAIN [None]
  - PORTAL VEIN THROMBOSIS [None]
